FAERS Safety Report 5474468-6 (Version None)
Quarter: 2007Q4

REPORT INFORMATION
  Report Type: 
  Country: None (occurrence: None)
  Receive Date: 20071002
  Receipt Date: 20070921
  Transmission Date: 20080405
  Serious: Yes (Other)
  Sender: FDA-Public Use
  Company Number: PHHO2007BR15764

PATIENT
  Age: 52 Year
  Sex: Female

DRUGS (1)
  1. TRILEPTAL [Suspect]
     Dosage: 600 MG,
     Route: 048
     Dates: end: 20070901

REACTIONS (1)
  - PSYCHOTIC DISORDER [None]
